FAERS Safety Report 8132106-8 (Version None)
Quarter: 2012Q1

REPORT INFORMATION
  Report Type: 
  Country: None (occurrence: None)
  Receive Date: 20120208
  Receipt Date: 20120130
  Transmission Date: 20120608
  Serious: Yes (Death)
  Sender: FDA-Public Use
  Company Number: DKLU1076465

PATIENT
  Age: 23 Month
  Sex: Male

DRUGS (2)
  1. SABRIL [Suspect]
     Indication: INFANTILE SPASMS
     Dosage: 500 MG MILLIGRAM(S), 2 IN 1 D, ORAL, 500 MG MILLIGRAM(S), 2 IN 1 D, ORAL
     Route: 048
     Dates: start: 20111202
  2. SABRIL [Suspect]
     Indication: INFANTILE SPASMS
     Dosage: 500 MG MILLIGRAM(S), 2 IN 1 D, ORAL, 500 MG MILLIGRAM(S), 2 IN 1 D, ORAL
     Route: 048
     Dates: start: 20111202

REACTIONS (3)
  - CONDITION AGGRAVATED [None]
  - MALAISE [None]
  - INFANTILE SPASMS [None]
